FAERS Safety Report 10566112 (Version 1)
Quarter: 2014Q4

REPORT INFORMATION
  Report Type: Report from Study
  Country: US (occurrence: US)
  Receive Date: 20141105
  Receipt Date: 20141105
  Transmission Date: 20150529
  Serious: Yes (Other)
  Sender: FDA-Public Use
  Company Number: US-SA-2014SA149107

PATIENT
  Sex: Female

DRUGS (3)
  1. NOVOLOG [Concomitant]
     Active Substance: INSULIN ASPART
  2. SOLOSTAR [Concomitant]
     Active Substance: DEVICE
     Dates: end: 20141026
  3. LANTUS SOLOSTAR [Suspect]
     Active Substance: INSULIN GLARGINE
     Indication: TYPE 2 DIABETES MELLITUS
     Dosage: DOSE:45 UNIT(S)
     Route: 065
     Dates: start: 1984, end: 20141026

REACTIONS (11)
  - Localised infection [Unknown]
  - Asthenia [Unknown]
  - Gallbladder operation [Unknown]
  - Injury associated with device [Unknown]
  - Dyspnoea [Unknown]
  - Myocardial infarction [Unknown]
  - Eye laser surgery [Unknown]
  - Visual acuity reduced [Recovering/Resolving]
  - Nausea [Unknown]
  - Toe amputation [Unknown]
  - Disability [Unknown]

NARRATIVE: CASE EVENT DATE: 2013
